FAERS Safety Report 4804399-3 (Version None)
Quarter: 2005Q4

REPORT INFORMATION
  Report Type: 
  Country: None (occurrence: None)
  Receive Date: 20051020
  Receipt Date: 20050928
  Transmission Date: 20060501
  Serious: Yes (Life-Threatening, Hospitalization)
  Sender: FDA-Public Use
  Company Number: US-GLAXOSMITHKLINE-A0576248A

PATIENT
  Age: 65 Year
  Sex: Female
  Weight: 83 kg

DRUGS (19)
  1. REQUIP [Suspect]
     Indication: DRUG USE FOR UNKNOWN INDICATION
     Dosage: .5MG TWICE PER DAY
     Route: 048
     Dates: start: 20050801, end: 20050927
  2. XANAX [Concomitant]
  3. ARIMIDEX [Concomitant]
  4. ZOLOFT [Concomitant]
  5. PROTONIX [Concomitant]
  6. VITORIN [Concomitant]
  7. TRAZODONE [Concomitant]
  8. NEURONTIN [Concomitant]
  9. ASPIRIN [Concomitant]
  10. VERAPAMIL [Concomitant]
  11. TOPROL-XL [Concomitant]
  12. FLEXERIL [Concomitant]
  13. MOBIC [Concomitant]
  14. RELPAX [Concomitant]
  15. CIPRO [Concomitant]
  16. OSCAL [Concomitant]
  17. CENTRUM MVI [Concomitant]
  18. PLAVIX [Concomitant]
  19. ASCORBIC ACID [Concomitant]

REACTIONS (4)
  - BLOOD CREATININE INCREASED [None]
  - DIFFICULTY IN WALKING [None]
  - FALL [None]
  - URINARY TRACT INFECTION [None]
